FAERS Safety Report 12457431 (Version 1)
Quarter: 2016Q2

REPORT INFORMATION
  Report Type: Other
  Country: DE (occurrence: DE)
  Receive Date: 20160610
  Receipt Date: 20160610
  Transmission Date: 20160815
  Serious: Yes (Hospitalization)
  Sender: FDA-Public Use
  Company Number: DE-MYLANLABS-2016M1023200

PATIENT

DRUGS (15)
  1. MIRTAZAPINE. [Suspect]
     Active Substance: MIRTAZAPINE
     Dosage: 7.5 MG, QD (DAILY DOSE: 7.5 MG MILLIGRAM(S) EVERY DAY)
     Route: 048
     Dates: start: 20141008, end: 20141009
  2. BISOPROLOL [Suspect]
     Active Substance: BISOPROLOL
     Dosage: 2.5 MG, QD (DAILY DOSE: 2.5 MG MILLIGRAM(S) EVERY DAY)
     Route: 048
     Dates: end: 20141015
  3. BISOPROLOL [Suspect]
     Active Substance: BISOPROLOL
     Dosage: 2.5 MG, QD (DAILY DOSE: 2.5 MG MILLIGRAM(S) EVERY DAY)
     Route: 048
     Dates: start: 20141025
  4. BISOPROLOL [Suspect]
     Active Substance: BISOPROLOL
     Dosage: UNK MG, UNK
     Route: 048
     Dates: start: 20141016, end: 20141024
  5. PIPAMPERON [Suspect]
     Active Substance: PIPAMPERONE HYDROCHLORIDE
     Dosage: 40 MG, UNK
     Route: 048
     Dates: start: 20141015
  6. DONEPEZIL. [Concomitant]
     Active Substance: DONEPEZIL
     Dosage: 10 MG, QD (DAILY DOSE: 10 MG MILLIGRAM(S) EVERY DAY)
     Route: 048
  7. TORASEMIDE [Suspect]
     Active Substance: TORSEMIDE
     Dosage: 5 MG, QD (DAILY DOSE: 5 MG MILLIGRAM(S) EVERY DAY)
     Route: 048
     Dates: end: 20141015
  8. PIPAMPERON [Suspect]
     Active Substance: PIPAMPERONE HYDROCHLORIDE
     Dosage: 20 MG, UNK
     Route: 048
     Dates: start: 20141014
  9. PIPAMPERON [Suspect]
     Active Substance: PIPAMPERONE HYDROCHLORIDE
     Dosage: 20 MG, UNK
     Route: 048
     Dates: start: 20141016
  10. MIRTAZAPINE. [Suspect]
     Active Substance: MIRTAZAPINE
     Dosage: UNK MG, UNK
     Route: 048
     Dates: start: 20141015
  11. MIRTAZAPINE. [Suspect]
     Active Substance: MIRTAZAPINE
     Dosage: 15 MG, UNK
     Route: 048
     Dates: start: 20141016
  12. AMIODARON                          /00133101/ [Concomitant]
     Active Substance: AMIODARONE
     Dosage: 200 MG, QD (DAILY DOSE: 200 MG MILLIGRAM(S) EVERY DAY)
     Route: 048
  13. ATORVASTATIN [Concomitant]
     Active Substance: ATORVASTATIN
     Dosage: 20 MG, UNK (SEIT WOCHEN)
     Route: 048
  14. MIRTAZAPINE. [Suspect]
     Active Substance: MIRTAZAPINE
     Dosage: 15 MG, QD (DAILY DOSE: 15 MG MILLIGRAM(S) EVERY DAY)
     Route: 048
     Dates: start: 20141010, end: 20141012
  15. MIRTAZAPINE. [Suspect]
     Active Substance: MIRTAZAPINE
     Dosage: 7.5 MG, QD (DAILY DOSE: 7.5 MG MILLIGRAM(S) EVERY DAY)
     Route: 048
     Dates: start: 20141013, end: 20141014

REACTIONS (1)
  - Circulatory collapse [Recovered/Resolved]

NARRATIVE: CASE EVENT DATE: 20141015
